FAERS Safety Report 23707454 (Version 5)
Quarter: 2024Q3

REPORT INFORMATION
  Report Type: Spontaneous
  Country: US (occurrence: US)
  Receive Date: 20240404
  Receipt Date: 20240817
  Transmission Date: 20241017
  Serious: No
  Sender: SANOFI AVENTIS
  Company Number: US-SA-SAC20240402000471

PATIENT
  Age: 28 Year
  Sex: Female

DRUGS (3)
  1. DUPIXENT [Suspect]
     Active Substance: DUPILUMAB
     Indication: Dermatitis atopic
     Dosage: 300 MG, QOW
     Route: 058
     Dates: start: 20240206, end: 2024
  2. DUPIXENT [Suspect]
     Active Substance: DUPILUMAB
     Indication: Eczema
     Dosage: 600 MG, 1X
     Route: 058
     Dates: start: 20240308, end: 20240308
  3. DUPIXENT [Suspect]
     Active Substance: DUPILUMAB
     Dosage: 300 MG, QOW
     Route: 058
     Dates: start: 20240322, end: 2024

REACTIONS (14)
  - Muscular weakness [Unknown]
  - Blister [Unknown]
  - Erythema [Unknown]
  - Neck pain [Recovering/Resolving]
  - Condition aggravated [Recovering/Resolving]
  - Urticaria [Recovered/Resolved]
  - Arthralgia [Recovering/Resolving]
  - Eczema [Unknown]
  - Erythema [Unknown]
  - Skin exfoliation [Unknown]
  - Scab [Unknown]
  - Product preparation error [Unknown]
  - Rash [Recovered/Resolved]
  - Inappropriate schedule of product administration [Unknown]

NARRATIVE: CASE EVENT DATE: 20240101
